FAERS Safety Report 9565133 (Version 3)
Quarter: 2014Q2

REPORT INFORMATION
  Report Type: Spontaneous
  Country: US (occurrence: US)
  Receive Date: 20130930
  Receipt Date: 20140404
  Transmission Date: 20141212
  Serious: No
  Sender: FDA-Public Use
  Company Number: US-PFIZER INC-2013275476

PATIENT
  Age: 62 Year
  Sex: Male

DRUGS (3)
  1. INLYTA [Suspect]
     Indication: RENAL CANCER
     Dosage: 3 MG, UNK
     Dates: start: 20130320
  2. INLYTA [Suspect]
     Dosage: 5 MG, 2X/DAY
     Route: 048
  3. INLYTA [Suspect]
     Dosage: 5 MG, DAILY (1 MG TABLET, TAKE 3 TABS IN THE AM, TAKE 2 TABS IN THE PM DAILY)

REACTIONS (2)
  - Blister [Recovering/Resolving]
  - Palmar-plantar erythrodysaesthesia syndrome [Recovering/Resolving]
